FAERS Safety Report 10507027 (Version 2)
Quarter: 2014Q4

REPORT INFORMATION
  Report Type: Spontaneous
  Country: US (occurrence: US)
  Receive Date: 20141009
  Receipt Date: 20141009
  Transmission Date: 20150528
  Serious: Yes (Death)
  Sender: FDA-Public Use
  Company Number: US-CIPLA LTD.-2014US01479

PATIENT

DRUGS (11)
  1. PACLITAXEL. [Suspect]
     Active Substance: PACLITAXEL
     Dosage: 135 MG/M2 (LEVEL 0), OVER 3 HOURS ON DAY 2 OF 21 DAY CYCLE
     Route: 042
  2. BORTEZOMIB [Suspect]
     Active Substance: BORTEZOMIB
     Dosage: 1.0 MG/M2 (LEVEL 3 TO LEVEL 5), ON ON DAYS 1, 4, 8 AND 11 OF 21 DAY CYCLE
     Route: 042
  3. PACLITAXEL. [Suspect]
     Active Substance: PACLITAXEL
     Dosage: 175 MG/M2 (LEVEL 4 TO LEVEL 6), OVER 3 HOURS ON DAY 2 OF 21 DAY CYCLE
     Route: 042
  4. PACLITAXEL. [Suspect]
     Active Substance: PACLITAXEL
     Dosage: 150 MG/M2 (LEVEL 1 TO LEVEL 3), OVER 3 HOURS ON DAY 2 OF 21 DAY CYCLE
     Route: 042
  5. BORTEZOMIB [Suspect]
     Active Substance: BORTEZOMIB
     Dosage: 1.3 MG/M2 (LEVEL 6), ON ON DAYS 1, 4, 8 AND 11 OF 21 DAY CYCLE
     Route: 042
  6. RADIATION [Suspect]
     Active Substance: RADIATION THERAPY
     Indication: NON-SMALL CELL LUNG CANCER
     Dosage: 2 GY, QD, 30 FRACTIONS GIVEN 5 DAYS/WEEK
  7. CARBOPLATIN. [Suspect]
     Active Substance: CARBOPLATIN
     Indication: NON-SMALL CELL LUNG CANCER
     Dosage: 5 AUC (LEVEL -1 TO LEVEL 4), AS 30 MINS IV INFUSION, ON DAY 2 OF 21 DAY CYCLE
  8. CARBOPLATIN. [Suspect]
     Active Substance: CARBOPLATIN
     Dosage: 6 AUC (LEVEL 5 TO LEVEL 6), AS 30 MINS IV INFUSION, ON DAY 2 OF 21 DAY CYCLE
  9. PACLITAXEL. [Suspect]
     Active Substance: PACLITAXEL
     Indication: NON-SMALL CELL LUNG CANCER
     Dosage: 120 MG/M2 (LEVEL -1), OVER 3 HOURS ON DAY 2 OF 21 DAY CYCLE
     Route: 042
  10. BORTEZOMIB [Suspect]
     Active Substance: BORTEZOMIB
     Indication: NON-SMALL CELL LUNG CANCER
     Dosage: 0.5 MG/M2 (LEVEL -1 TO LEVEL 1), ON ON DAYS 1, 4, 8 AND 11 OF 21 DAY CYCLE
     Route: 042
  11. BORTEZOMIB [Suspect]
     Active Substance: BORTEZOMIB
     Dosage: 0.8 MG/M2 (LEVEL 2), ON ON DAYS 1, 4, 8 AND 11 OF 21 DAY CYCLE
     Route: 042

REACTIONS (1)
  - Pneumonitis [Fatal]
